FAERS Safety Report 6771611-3 (Version None)
Quarter: 2010Q2

REPORT INFORMATION
  Report Type: 
  Country: None (occurrence: None)
  Receive Date: 20100616
  Receipt Date: 20100604
  Transmission Date: 20101027
  Serious: Yes (Hospitalization)
  Sender: FDA-Public Use
  Company Number: PHHY2010JP36347

PATIENT
  Sex: Female
  Weight: 39 kg

DRUGS (7)
  1. DIOVAN [Suspect]
     Indication: HYPERTENSION
     Dosage: 80 MG, QD
     Route: 048
     Dates: start: 20071011, end: 20081119
  2. DIOVAN [Suspect]
     Dosage: 40 MG, QD
     Route: 048
     Dates: start: 20081120
  3. ALDACTONE [Concomitant]
     Indication: HYPERTENSION
     Dosage: 25 MG, UNK
     Route: 048
  4. OMEPRAL [Concomitant]
     Dosage: 20 MG, UNK
     Route: 048
  5. FERROMIA [Concomitant]
     Dosage: 100 MG, UNK
     Route: 048
  6. WARFARIN [Concomitant]
     Dosage: 2 MG, UNK
     Route: 048
  7. LASIX [Concomitant]
     Dosage: 10 MG, UNK
     Route: 048

REACTIONS (1)
  - GASTROINTESTINAL HAEMORRHAGE [None]
